FAERS Safety Report 17574337 (Version 1)
Quarter: 2020Q1

REPORT INFORMATION
  Report Type: Spontaneous
  Country: US (occurrence: US)
  Receive Date: 20200324
  Receipt Date: 20200324
  Transmission Date: 20200409
  Serious: Yes (Hospitalization, Other)
  Sender: FDA-Public Use
  Company Number: US-ACADIA PHARMACEUTICALS INC.-ACA-2020-PIM-000746

PATIENT
  Age: 80 Year
  Sex: Male
  Weight: 79 kg

DRUGS (4)
  1. NUPLAZID [Suspect]
     Active Substance: PIMAVANSERIN TARTRATE
     Indication: PARKINSON^S DISEASE PSYCHOSIS
     Dosage: 34 MILLIGRAM, QD
     Route: 048
     Dates: start: 20200214, end: 20200217
  2. NUPLAZID [Suspect]
     Active Substance: PIMAVANSERIN TARTRATE
     Indication: DELUSION
  3. NUPLAZID [Suspect]
     Active Substance: PIMAVANSERIN TARTRATE
     Indication: HALLUCINATION
  4. SINEMET [Concomitant]
     Active Substance: CARBIDOPA\LEVODOPA
     Indication: PRODUCT USED FOR UNKNOWN INDICATION
     Dosage: 25/100 MG 1.5 TAB 4 TIMES DAILY

REACTIONS (10)
  - Fall [Unknown]
  - Confusional state [Unknown]
  - Thirst [Unknown]
  - Bradycardia [Unknown]
  - Blood pressure fluctuation [Unknown]
  - Chest pain [Recovered/Resolved]
  - Syncope [Unknown]
  - Electrocardiogram QT prolonged [Unknown]
  - Loss of personal independence in daily activities [Unknown]
  - Skin discolouration [Recovered/Resolved]

NARRATIVE: CASE EVENT DATE: 202002
